FAERS Safety Report 4791856-1 (Version None)
Quarter: 2005Q4

REPORT INFORMATION
  Report Type: 
  Country: None (occurrence: None)
  Receive Date: 20051005
  Receipt Date: 20050923
  Transmission Date: 20060501
  Serious: Yes (Disabling, Other)
  Sender: FDA-Public Use
  Company Number: 2005133996

PATIENT
  Age: 75 Year
  Sex: Male
  Weight: 83.4 kg

DRUGS (5)
  1. DOXAZOSIN (DOXAZOSIN) [Suspect]
     Indication: ILL-DEFINED DISORDER
     Dosage: 4 MG (2 MG, BID), ORAL
     Route: 048
     Dates: start: 20050725, end: 20050729
  2. ASPIRIN [Concomitant]
  3. OXYTETRACYCLINE [Concomitant]
  4. AMLODIPINE [Concomitant]
  5. CARDURA XL [Concomitant]

REACTIONS (1)
  - CEREBROVASCULAR ACCIDENT [None]
